FAERS Safety Report 10699792 (Version 1)
Quarter: 2014Q4

REPORT INFORMATION
  Report Type: Spontaneous
  Country: DE (occurrence: None)
  Receive Date: 20141229
  Receipt Date: 20141229
  Transmission Date: 20150529
  Serious: Yes (Other)
  Sender: FDA-Public Use
  Company Number: GTI002809

PATIENT
  Age: 67 Year
  Sex: Male

DRUGS (1)
  1. GAMUNEX [Suspect]
     Active Substance: HUMAN IMMUNOGLOBULIN G
     Indication: CHRONIC INFLAMMATORY DEMYELINATING POLYRADICULONEUROPATHY
     Route: 042
     Dates: start: 20141105

REACTIONS (6)
  - Transaminases increased [None]
  - Hepatitis [None]
  - Urticaria [None]
  - Hepatitis B surface antibody positive [None]
  - Hepatitis B core antibody positive [None]
  - Hepatitis A virus test positive [None]

NARRATIVE: CASE EVENT DATE: 20141215
